FAERS Safety Report 5094186-6 (Version None)
Quarter: 2006Q3

REPORT INFORMATION
  Report Type: 
  Country: None (occurrence: None)
  Receive Date: 20060831
  Receipt Date: 20060808
  Transmission Date: 20061208
  Serious: Yes (Disabling)
  Sender: FDA-Public Use
  Company Number: PHNR2006AU01018

PATIENT
  Age: 62 Year
  Sex: Female

DRUGS (1)
  1. ZOMETA [Suspect]
     Indication: MULTIPLE MYELOMA
     Dosage: 4 MG EVERY 4 WEEKS
     Route: 065
     Dates: start: 20030101

REACTIONS (3)
  - OSTEONECROSIS [None]
  - POOR PERSONAL HYGIENE [None]
  - TOOTH EXTRACTION [None]
